FAERS Safety Report 7171322-9 (Version None)
Quarter: 2010Q4

REPORT INFORMATION
  Report Type: 
  Country: None (occurrence: None)
  Receive Date: 20101217
  Receipt Date: 20101201
  Transmission Date: 20110411
  Serious: No
  Sender: FDA-Public Use
  Company Number: US-B.I. PHARMACEUTICALS,INC./RIDGEFIELD-2010-BP-13518BP

PATIENT
  Age: 87 Year
  Sex: Female

DRUGS (11)
  1. PRADAXA [Suspect]
     Indication: CEREBROVASCULAR ACCIDENT PROPHYLAXIS
     Dosage: 300 MG
     Route: 048
     Dates: start: 20101126
  2. PRADAXA [Suspect]
     Indication: ATRIAL FIBRILLATION
  3. SYNTHROID [Concomitant]
     Indication: HYPOTHYROIDISM
  4. SOTALOL [Concomitant]
     Indication: ATRIAL FIBRILLATION
  5. FUROSEMIDE [Concomitant]
     Indication: FLUID RETENTION
  6. ENALAPRIL [Concomitant]
     Indication: HYPERTENSION
  7. DULCOLAX [Concomitant]
     Indication: CONSTIPATION
  8. PANTOPRAZOLE [Concomitant]
     Indication: GASTROOESOPHAGEAL REFLUX DISEASE
  9. LANOXIN [Concomitant]
     Indication: ATRIAL FIBRILLATION
  10. SIMVASTATIN [Concomitant]
     Indication: BLOOD CHOLESTEROL INCREASED
  11. SANCTURA XR [Concomitant]
     Indication: MICTURITION URGENCY

REACTIONS (3)
  - DENTAL DISCOMFORT [None]
  - DYSPEPSIA [None]
  - NAUSEA [None]
